FAERS Safety Report 8499086 (Version 4)
Quarter: 2014Q3

REPORT INFORMATION
  Report Type: Spontaneous
  Country: US (occurrence: None)
  Receive Date: 20120328
  Receipt Date: 20140702
  Transmission Date: 20150326
  Serious: Yes (Other)
  Sender: FDA-Public Use
  Company Number: ADR-2011-10710

PATIENT
  Age: 47 Year
  Sex: Female

DRUGS (3)
  1. BUPIVACAINE INTRATHECAL [Suspect]
     Active Substance: BUPIVACAINE
  2. BACLOFEN. [Suspect]
     Active Substance: BACLOFEN
     Indication: MUSCLE SPASTICITY
     Dosage: MCG, DAILY, INTRATH
  3. MORPHINE [Suspect]
     Active Substance: MORPHINE

REACTIONS (7)
  - Pain [None]
  - Nausea [None]
  - Device breakage [None]
  - Diarrhoea [None]
  - Drug withdrawal syndrome [None]
  - Rhinorrhoea [None]
  - Abdominal pain upper [None]

NARRATIVE: CASE EVENT DATE: 20110503
